FAERS Safety Report 17102041 (Version 1)
Quarter: 2019Q4

REPORT INFORMATION
  Report Type: Report from Study
  Country: EG (occurrence: EG)
  Receive Date: 20191202
  Receipt Date: 20191202
  Transmission Date: 20200122
  Serious: Yes (Other)
  Sender: FDA-Public Use
  Company Number: EG-REGENERON PHARMACEUTICALS, INC.-2019-57401

PATIENT

DRUGS (8)
  1. EYLEA [Suspect]
     Active Substance: AFLIBERCEPT
     Indication: EYE OEDEMA
     Dosage: RIGHT EYE
     Route: 031
  2. CONCOR [Concomitant]
     Active Substance: BISOPROLOL FUMARATE
     Indication: PRODUCT USED FOR UNKNOWN INDICATION
     Dosage: 1 DF, QD
     Dates: start: 2017
  3. OMEGA-3                            /06852001/ [Concomitant]
     Active Substance: DOCONEXENT\ICOSAPENT
     Indication: NUTRITIONAL SUPPLEMENTATION
     Dosage: 1 DF, QD
     Dates: start: 2009
  4. NOVONORM [Concomitant]
     Active Substance: REPAGLINIDE
     Indication: PRODUCT USED FOR UNKNOWN INDICATION
     Dosage: 2 MG, QD
     Dates: start: 2007
  5. EYLEA [Suspect]
     Active Substance: AFLIBERCEPT
     Indication: CORNEAL BLEEDING
     Dosage: RIGHT EYE, FIRST INJECTION
     Route: 031
     Dates: start: 20190903, end: 20190903
  6. EYLEA [Suspect]
     Active Substance: AFLIBERCEPT
     Indication: RETINAL HAEMORRHAGE
     Dosage: RIGHT EYE, SECOND INJECTION
     Route: 031
     Dates: start: 20191101, end: 20191101
  7. VITAMIN D                          /07503901/ [Concomitant]
     Active Substance: VITAMIN D NOS
     Indication: NUTRITIONAL SUPPLEMENTATION
     Dosage: 1 DF, QD
     Dates: start: 2017
  8. MOBITIL                            /01044401/ [Concomitant]
     Indication: INFLAMMATION
     Dosage: 1 DF, QD
     Dates: start: 2014

REACTIONS (4)
  - Vision blurred [Not Recovered/Not Resolved]
  - Product use in unapproved indication [Unknown]
  - Off label use [Unknown]
  - Drug ineffective for unapproved indication [Not Recovered/Not Resolved]

NARRATIVE: CASE EVENT DATE: 2019
